FAERS Safety Report 5896634-8 (Version None)
Quarter: 2008Q3

REPORT INFORMATION
  Report Type: 
  Country: None (occurrence: None)
  Receive Date: 20080924
  Receipt Date: 20071105
  Transmission Date: 20090109
  Serious: Yes (Hospitalization)
  Sender: FDA-Public Use
  Company Number: US-BAYER-200713228BWH

PATIENT
  Age: 78 Year
  Sex: Female
  Weight: 64 kg

DRUGS (6)
  1. AVELOX [Suspect]
     Indication: OTITIS MEDIA
     Route: 048
     Dates: start: 20070910
  2. DIOVAN [Concomitant]
  3. PLAVIX [Concomitant]
  4. NORVASC [Concomitant]
  5. VYTORIN [Concomitant]
  6. ASPIRIN [Concomitant]

REACTIONS (13)
  - ANAPHYLACTIC REACTION [None]
  - ANAPHYLACTIC SHOCK [None]
  - CATATONIA [None]
  - FACE OEDEMA [None]
  - FLUSHING [None]
  - HYPERTENSION [None]
  - LIP SWELLING [None]
  - LOSS OF CONSCIOUSNESS [None]
  - NAUSEA [None]
  - PARAESTHESIA ORAL [None]
  - PRURITUS [None]
  - SWOLLEN TONGUE [None]
  - TACHYCARDIA [None]
